FAERS Safety Report 4538680-2 (Version None)
Quarter: 2004Q4

REPORT INFORMATION
  Report Type: 
  Country: None (occurrence: None)
  Receive Date: 20041223
  Receipt Date: 20040922
  Transmission Date: 20050328
  Serious: No
  Sender: FDA-Public Use
  Company Number: US-JNJFOC-20040908144

PATIENT
  Age: 36 Year
  Sex: Female
  Weight: 122.4712 kg

DRUGS (2)
  1. ORTHO EVRA [Suspect]
     Indication: CONTRACEPTION
     Dosage: 1 DOSE(S), 3 IN 4 WEEK, TRANSDERMAL
     Route: 062
  2. ANTI HYPERTENSIVE (ANTIHYPERTENSIVES) [Concomitant]

REACTIONS (1)
  - BLOOD PRESSURE INCREASED [None]
